FAERS Safety Report 9486086 (Version 1)
Quarter: 2013Q3

REPORT INFORMATION
  Report Type: Spontaneous
  Country: US (occurrence: US)
  Receive Date: 20130829
  Receipt Date: 20130829
  Transmission Date: 20140515
  Serious: Yes (Other)
  Sender: FDA-Public Use
  Company Number: 2013SP002430

PATIENT
  Sex: Male

DRUGS (4)
  1. LEVALBUTEROL INHALATION SOLUTION [Suspect]
     Indication: EMPHYSEMA
     Route: 055
     Dates: start: 201301
  2. LEVALBUTEROL INHALATION SOLUTION [Suspect]
     Indication: CHRONIC OBSTRUCTIVE PULMONARY DISEASE
     Route: 055
     Dates: start: 201301
  3. COUMADIN /00014802/ [Concomitant]
     Indication: CEREBROVASCULAR ACCIDENT
     Dates: start: 201301
  4. SPIRIVA [Concomitant]
     Indication: CHRONIC OBSTRUCTIVE PULMONARY DISEASE
     Route: 055

REACTIONS (2)
  - Haemoptysis [Not Recovered/Not Resolved]
  - Dyspnoea [Not Recovered/Not Resolved]
